FAERS Safety Report 14980720 (Version 1)
Quarter: 2018Q2

REPORT INFORMATION
  Report Type: Spontaneous
  Country: US (occurrence: US)
  Receive Date: 20180515
  Receipt Date: 20180515
  Transmission Date: 20180711
  Serious: Yes (Life-Threatening, Hospitalization, Disabling, Other)
  Sender: FDA-Public Use
  Company Number: None

PATIENT
  Age: 74 Year
  Sex: Female
  Weight: 84.82 kg

DRUGS (4)
  1. THORAZINE [Suspect]
     Active Substance: CHLORPROMAZINE
     Indication: PRODUCT USED FOR UNKNOWN INDICATION
     Dosage: ?          OTHER ROUTE:MOUTH + INJECTION?
     Dates: start: 1952
  2. ARTANE [Concomitant]
     Active Substance: TRIHEXYPHENIDYL HYDROCHLORIDE
  3. RISPERDAL [Concomitant]
     Active Substance: RISPERIDONE
  4. PERICOLACE [Concomitant]

REACTIONS (18)
  - Chest pain [None]
  - Pollakiuria [None]
  - Temperature intolerance [None]
  - Musculoskeletal stiffness [None]
  - Deafness [None]
  - Balance disorder [None]
  - Loss of personal independence in daily activities [None]
  - Increased appetite [None]
  - Eye pain [None]
  - Hypotension [None]
  - Skin disorder [None]
  - Fatigue [None]
  - Tinnitus [None]
  - Fall [None]
  - Dyspnoea [None]
  - Weight increased [None]
  - Asthenia [None]
  - Metamorphopsia [None]
